FAERS Safety Report 4578559-3 (Version None)
Quarter: 2005Q1

REPORT INFORMATION
  Report Type: 
  Country: None (occurrence: None)
  Receive Date: 20050209
  Receipt Date: 20050202
  Transmission Date: 20050727
  Serious: Yes (Life-Threatening, Hospitalization)
  Sender: FDA-Public Use
  Company Number: 2005-124884-NL

PATIENT
  Age: 73 Year
  Sex: Female

DRUGS (7)
  1. MIRTAZAPINE [Suspect]
     Dosage: 30 MG
     Dates: end: 20001231
  2. AMISULPRIDE [Suspect]
     Dosage: 400 MG
     Dates: end: 20001231
  3. BIPERIDEN HYDROCHLORIDE TAB [Suspect]
     Dosage: 1 DF
     Dates: end: 20001231
  4. BUDESONIDE [Concomitant]
  5. LEVOTHYROXINE [Concomitant]
  6. POTASSIUM CHLORIDE [Concomitant]
  7. HEPARIN-FRACTION [Concomitant]

REACTIONS (2)
  - ELECTROCARDIOGRAM QT PROLONGED [None]
  - VENTRICULAR EXTRASYSTOLES [None]
